FAERS Safety Report 12759922 (Version 3)
Quarter: 2016Q4

REPORT INFORMATION
  Report Type: Spontaneous
  Country: JP (occurrence: JP)
  Receive Date: 20160919
  Receipt Date: 20161230
  Transmission Date: 20170207
  Serious: Yes (Death, Other)
  Sender: FDA-Public Use
  Company Number: JP-JNJFOC-20160918028

PATIENT
  Age: 95 Year
  Sex: Male

DRUGS (29)
  1. MEMARY [Suspect]
     Active Substance: MEMANTINE HYDROCHLORIDE
     Indication: DEMENTIA ALZHEIMER^S TYPE
     Route: 048
     Dates: start: 20160101, end: 20160101
  2. BELSOMRA [Concomitant]
     Active Substance: SUVOREXANT
     Indication: INSOMNIA
     Route: 048
     Dates: start: 20151125, end: 20160514
  3. DESYREL [Concomitant]
     Active Substance: TRAZODONE HYDROCHLORIDE
     Indication: DEPRESSION
     Route: 048
     Dates: start: 20151125, end: 20160208
  4. YOKUKANSAN [Concomitant]
     Active Substance: HERBALS
     Indication: NEUROSIS
     Dosage: GRANULATED POWDER
     Route: 048
     Dates: start: 20160222, end: 20160613
  5. HANGEKOBOKUTO [Concomitant]
     Indication: PRODUCTIVE COUGH
     Route: 048
     Dates: start: 20160514, end: 20160617
  6. MEMARY [Suspect]
     Active Substance: MEMANTINE HYDROCHLORIDE
     Indication: DEMENTIA ALZHEIMER^S TYPE
     Route: 048
     Dates: start: 20160101, end: 20160101
  7. TANATRIL [Concomitant]
     Active Substance: IMIDAPRIL
     Indication: HYPERTENSION
     Route: 048
     Dates: start: 20160530, end: 20160715
  8. HANGEKOBOKUTO [Concomitant]
     Indication: ANXIETY DISORDER
     Route: 048
     Dates: start: 20160514, end: 20160617
  9. ROZEREM [Concomitant]
     Active Substance: RAMELTEON
     Indication: INSOMNIA
     Route: 048
     Dates: start: 20151123, end: 20160514
  10. HANGEKOBOKUTO [Concomitant]
     Indication: OESOPHAGEAL STENOSIS
     Route: 048
     Dates: start: 20160514, end: 20160617
  11. MUCOSOLVAN [Concomitant]
     Active Substance: AMBROXOL HYDROCHLORIDE
     Indication: PRODUCTIVE COUGH
     Route: 048
     Dates: start: 20160531, end: 20160618
  12. TAKEPRON [Concomitant]
     Active Substance: LANSOPRAZOLE
     Indication: GASTROOESOPHAGEAL REFLUX DISEASE
     Route: 048
     Dates: start: 201602, end: 20160711
  13. MUCODYNE [Concomitant]
     Active Substance: CARBOCYSTEINE
     Indication: PRODUCTIVE COUGH
     Route: 048
     Dates: start: 20160514, end: 20160617
  14. CLARITH [Concomitant]
     Active Substance: CLARITHROMYCIN
     Indication: PRODUCTIVE COUGH
     Route: 048
     Dates: start: 20160523, end: 20160606
  15. MEMARY [Suspect]
     Active Substance: MEMANTINE HYDROCHLORIDE
     Indication: INSOMNIA
     Route: 048
     Dates: start: 20160101, end: 20160101
  16. MEMARY [Suspect]
     Active Substance: MEMANTINE HYDROCHLORIDE
     Indication: INSOMNIA
     Route: 048
     Dates: start: 2016, end: 20160613
  17. MEMARY [Suspect]
     Active Substance: MEMANTINE HYDROCHLORIDE
     Indication: DEMENTIA ALZHEIMER^S TYPE
     Route: 048
     Dates: start: 20160318, end: 2016
  18. TAMSULOSIN HYDROCHLORIDE. [Concomitant]
     Active Substance: TAMSULOSIN HYDROCHLORIDE
     Indication: BENIGN PROSTATIC HYPERPLASIA
     Route: 048
     Dates: end: 20160613
  19. RISPERDAL [Suspect]
     Active Substance: RISPERIDONE
     Indication: ANXIETY DISORDER
     Route: 048
     Dates: start: 20160222, end: 20160419
  20. RISPERDAL [Suspect]
     Active Substance: RISPERIDONE
     Indication: SCHIZOPHRENIA
     Route: 048
     Dates: start: 20160222, end: 20160419
  21. CALONAL [Concomitant]
     Active Substance: ACETAMINOPHEN
     Route: 065
     Dates: start: 20160222
  22. LUNESTA [Concomitant]
     Active Substance: ESZOPICLONE
     Indication: INSOMNIA
     Route: 048
     Dates: start: 20160314, end: 20160321
  23. MEMARY [Suspect]
     Active Substance: MEMANTINE HYDROCHLORIDE
     Indication: INSOMNIA
     Route: 048
     Dates: start: 20160101, end: 20160101
  24. BIOFERMIN [Concomitant]
     Active Substance: BACILLUS SUBTILIS\LACTOBACILLUS ACIDOPHILUS\STREPTOCOCCUS FAECAIS
     Indication: CONSTIPATION
     Route: 048
     Dates: start: 201602, end: 20160613
  25. MAGLAX [Concomitant]
     Active Substance: MAGNESIUM OXIDE
     Indication: CONSTIPATION
     Route: 048
     Dates: start: 20160118, end: 20160711
  26. SYMMETREL [Concomitant]
     Active Substance: AMANTADINE HYDROCHLORIDE
     Indication: CEREBRAL INFARCTION
     Route: 048
     Dates: start: 20160530, end: 20160715
  27. MEMARY [Suspect]
     Active Substance: MEMANTINE HYDROCHLORIDE
     Indication: INSOMNIA
     Route: 048
     Dates: start: 20160318, end: 2016
  28. MEMARY [Suspect]
     Active Substance: MEMANTINE HYDROCHLORIDE
     Indication: DEMENTIA ALZHEIMER^S TYPE
     Route: 048
     Dates: start: 2016, end: 20160613
  29. DESYREL [Concomitant]
     Active Substance: TRAZODONE HYDROCHLORIDE
     Indication: DEPRESSION
     Route: 048
     Dates: start: 20160222, end: 20160229

REACTIONS (15)
  - Insomnia [Recovering/Resolving]
  - Pyrexia [Unknown]
  - Hepatic enzyme increased [Unknown]
  - Off label use [Unknown]
  - Asthenia [Unknown]
  - Fall [Unknown]
  - Pneumonia aspiration [Unknown]
  - Dysphagia [Not Recovered/Not Resolved]
  - Drooling [Unknown]
  - Wound [Unknown]
  - Mutism [Unknown]
  - Productive cough [Unknown]
  - General physical health deterioration [Unknown]
  - Inappropriate schedule of drug administration [Unknown]
  - Marasmus [Fatal]

NARRATIVE: CASE EVENT DATE: 2016
